FAERS Safety Report 25336795 (Version 1)
Quarter: 2025Q2

REPORT INFORMATION
  Report Type: Spontaneous
  Country: US (occurrence: None)
  Receive Date: 20250520
  Receipt Date: 20250520
  Transmission Date: 20250716
  Serious: Yes (Other)
  Sender: FDA-CTU
  Company Number: None

PATIENT
  Sex: Female

DRUGS (7)
  1. TIVICAY [Suspect]
     Active Substance: DOLUTEGRAVIR SODIUM
     Indication: HIV infection
     Dosage: FREQUENCY : DAILY;?
     Dates: start: 20150819
  2. DESCOVY [Concomitant]
     Active Substance: EMTRICITABINE\TENOFOVIR ALAFENAMIDE FUMARATE
  3. JANUVIA TAB 50MG [Concomitant]
  4. LIPITOR TAB 10MG [Concomitant]
  5. METFORMIN TAB [Concomitant]
  6. MUL TIVIT/FL CHW [Concomitant]
  7. TESTOSTERONE POW [Concomitant]

REACTIONS (1)
  - Therapy interrupted [None]
